FAERS Safety Report 4712099-3 (Version None)
Quarter: 2005Q3

REPORT INFORMATION
  Report Type: 
  Country: None (occurrence: None)
  Receive Date: 20050712
  Receipt Date: 20050701
  Transmission Date: 20060218
  Serious: Yes (Life-Threatening, Other)
  Sender: FDA-Public Use
  Company Number: US-JNJFOC-20050604311

PATIENT
  Sex: Male
  Weight: 36.74 kg

DRUGS (4)
  1. CONCERTA [Suspect]
     Route: 049
  2. STRATTERA [Concomitant]
     Route: 049
  3. STRATTERA [Concomitant]
     Route: 049
  4. STRATTERA [Concomitant]
     Route: 049

REACTIONS (1)
  - CEREBROVASCULAR ACCIDENT [None]
